FAERS Safety Report 6235189-5 (Version None)
Quarter: 2009Q2

REPORT INFORMATION
  Report Type: 
  Country: None (occurrence: None)
  Receive Date: 20090618
  Receipt Date: 20090609
  Transmission Date: 20091009
  Serious: Yes (Death, Other)
  Sender: FDA-Public Use
  Company Number: CH-GENENTECH-285092

PATIENT
  Sex: Female

DRUGS (2)
  1. HERCEPTIN [Suspect]
     Indication: BREAST CANCER
     Dosage: UNK
     Route: 065
  2. CAPECITABINE [Suspect]
     Indication: BREAST CANCER
     Dosage: UNK
     Route: 065

REACTIONS (4)
  - DUODENAL ULCER [None]
  - NEOPLASM MALIGNANT [None]
  - NEUROTOXICITY [None]
  - VENTRICULAR DYSFUNCTION [None]
